FAERS Safety Report 19495175 (Version 2)
Quarter: 2021Q3

REPORT INFORMATION
  Report Type: Spontaneous
  Country: GR (occurrence: GR)
  Receive Date: 20210705
  Receipt Date: 20210709
  Transmission Date: 20211014
  Serious: Yes (Hospitalization, Other)
  Sender: FDA-Public Use
  Company Number: GR-B.I. PHARMACEUTICALS,INC./RIDGEFIELD-2021-BI-113339

PATIENT
  Age: 42 Year
  Sex: Female

DRUGS (7)
  1. JARDIANCE [Suspect]
     Active Substance: EMPAGLIFLOZIN
     Indication: TYPE 2 DIABETES MELLITUS
     Route: 048
     Dates: end: 20210529
  2. ZYPREXA [Concomitant]
     Active Substance: OLANZAPINE
  3. ALOPERIDIN [HALOPERIDOL] [Concomitant]
  4. JENTADUETO [Suspect]
     Active Substance: LINAGLIPTIN\METFORMIN HYDROCHLORIDE
     Indication: TYPE 2 DIABETES MELLITUS
     Route: 048
  5. TAVOR (LORAZEPAM) [Concomitant]
     Active Substance: LORAZEPAM
  6. DEPAKINE [VALPROIC ACID] [Concomitant]
     Active Substance: VALPROIC ACID
  7. STILNOX [Concomitant]
     Active Substance: ZOLPIDEM TARTRATE

REACTIONS (2)
  - Diabetic ketoacidosis [Recovered/Resolved]
  - Diabetic foot infection [Recovering/Resolving]

NARRATIVE: CASE EVENT DATE: 20210529
